FAERS Safety Report 10538278 (Version 2)
Quarter: 2014Q4

REPORT INFORMATION
  Report Type: Spontaneous
  Country: FR (occurrence: FR)
  Receive Date: 20141023
  Receipt Date: 20141023
  Transmission Date: 20150529
  Serious: Yes (Hospitalization)
  Sender: FDA-Public Use
  Company Number: PHHY2014FR005889

PATIENT
  Age: 26 Year
  Sex: Male

DRUGS (5)
  1. DAFALGAN CODEINE [Suspect]
     Active Substance: ACETAMINOPHEN\CODEINE PHOSPHATE
     Indication: EYE PAIN
     Dosage: UNK UKN, UNK
     Route: 065
     Dates: start: 20131027
  2. ORELOX [Suspect]
     Active Substance: CEFPODOXIME
     Indication: SINUSITIS
     Dosage: 100 MG, UNK
     Route: 065
     Dates: start: 20131023
  3. TEGRETOL [Suspect]
     Active Substance: CARBAMAZEPINE
     Indication: PAIN
     Dosage: UNK UKN, UNK
     Route: 065
     Dates: start: 20131030, end: 20131113
  4. IBUPROFEN. [Suspect]
     Active Substance: IBUPROFEN
     Indication: EYE PAIN
     Dosage: UNK UKN, UNK
     Route: 065
     Dates: start: 20131027
  5. DETURGYLONE [Suspect]
     Active Substance: OXYMETAZOLINE HYDROCHLORIDE\PREDNISOLONE SODIUM PHOSPHATE
     Indication: SINUSITIS
     Dosage: UNK UKN, UNK
     Route: 065
     Dates: start: 20131023

REACTIONS (12)
  - Rash papular [Recovered/Resolved]
  - Tonsillitis [Recovered/Resolved]
  - C-reactive protein increased [Recovered/Resolved]
  - Pruritus [Recovered/Resolved]
  - Pyrexia [Recovered/Resolved]
  - Toxic skin eruption [Recovered/Resolved]
  - Gingivitis [Recovered/Resolved]
  - Conjunctivitis [Recovered/Resolved]
  - Epstein-Barr viraemia [Recovered/Resolved]
  - Antinuclear antibody positive [Unknown]
  - Herpes virus infection [Recovered/Resolved]
  - Tachycardia [Recovered/Resolved]

NARRATIVE: CASE EVENT DATE: 20131113
